FAERS Safety Report 7469569-7 (Version None)
Quarter: 2011Q2

REPORT INFORMATION
  Report Type: 
  Country: None (occurrence: None)
  Receive Date: 20110510
  Receipt Date: 20110503
  Transmission Date: 20111010
  Serious: No
  Sender: FDA-Public Use
  Company Number: PHHY2011US37474

PATIENT
  Sex: Female
  Weight: 65.76 kg

DRUGS (5)
  1. OXYCONTIN [Concomitant]
  2. ALBUTEROL [Concomitant]
  3. TASIGNA [Suspect]
     Indication: NEOPLASM MALIGNANT
     Dosage: 200 MG, BID
     Route: 048
     Dates: start: 20110329
  4. NEURONTIN [Concomitant]
  5. LASIX [Concomitant]

REACTIONS (1)
  - HYPERHIDROSIS [None]
